FAERS Safety Report 7577132-2 (Version None)
Quarter: 2011Q2

REPORT INFORMATION
  Report Type: 
  Country: None (occurrence: None)
  Receive Date: 20110628
  Receipt Date: 20110207
  Transmission Date: 20111010
  Serious: No
  Sender: FDA-Public Use
  Company Number: US-BAYER-2011-042940

PATIENT
  Age: 80 Year
  Sex: Female
  Weight: 55 kg

DRUGS (5)
  1. CALCIUM CARBONATE [Suspect]
     Indication: VITAMIN SUPPLEMENTATION
     Dosage: 2 DF, QD
     Route: 048
  2. TAMOXIFEN CITRATE [Concomitant]
  3. CITRACAL PETITES [Suspect]
     Indication: VITAMIN SUPPLEMENTATION
     Dosage: 2 DF, UNK
     Route: 048
  4. CENTRUM SILVER [Concomitant]
  5. VITAMIN D [Concomitant]

REACTIONS (1)
  - CONSTIPATION [None]
